FAERS Safety Report 9608333 (Version 1)
Quarter: 2013Q4

REPORT INFORMATION
  Report Type: Spontaneous
  Country: US (occurrence: US)
  Receive Date: 20131009
  Receipt Date: 20131009
  Transmission Date: 20140711
  Serious: No
  Sender: FDA-Public Use
  Company Number: US-PFIZER INC-2013284879

PATIENT
  Sex: Male

DRUGS (1)
  1. ADVIL PM [Suspect]
     Indication: HEADACHE
     Dosage: UNK

REACTIONS (6)
  - Somnolence [Unknown]
  - Confusional state [Unknown]
  - Feeling abnormal [Unknown]
  - Feeling jittery [Unknown]
  - Insomnia [Unknown]
  - Restlessness [Unknown]
